FAERS Safety Report 10242537 (Version 2)
Quarter: 2014Q2

REPORT INFORMATION
  Report Type: Spontaneous
  Country: US (occurrence: US)
  Receive Date: 20140617
  Receipt Date: 20140630
  Transmission Date: 20141212
  Serious: Yes (Other)
  Sender: FDA-Public Use
  Company Number: US-TEVA-489021USA

PATIENT
  Age: 21 Year
  Sex: Female
  Weight: 68.1 kg

DRUGS (2)
  1. PLAN B ONE-STEP [Suspect]
     Indication: POST COITAL CONTRACEPTION
     Dosage: 1.5 MILLIGRAM DAILY;
     Route: 048
     Dates: start: 20140603, end: 20140603
  2. PLAN B ONE-STEP [Suspect]
     Dosage: 1.5 MILLIGRAM DAILY;
     Route: 048
     Dates: start: 20140607, end: 20140607

REACTIONS (7)
  - Pregnancy after post coital contraception [Unknown]
  - Nasal congestion [Recovered/Resolved]
  - Feeling hot [Recovered/Resolved]
  - Pain [Unknown]
  - Abdominal discomfort [Unknown]
  - Metrorrhagia [Recovered/Resolved]
  - Maternal exposure before pregnancy [Unknown]
